FAERS Safety Report 7164771-6 (Version None)
Quarter: 2010Q4

REPORT INFORMATION
  Report Type: 
  Country: None (occurrence: None)
  Receive Date: 20101215
  Receipt Date: 20101206
  Transmission Date: 20110411
  Serious: Yes (Hospitalization)
  Sender: FDA-Public Use
  Company Number: US-ABBOTT-10P-163-0690358-00

PATIENT
  Age: 41 Year
  Sex: Male

DRUGS (12)
  1. RITONAVIR [Suspect]
     Indication: HIV INFECTION
     Route: 048
     Dates: start: 20070313, end: 20100423
  2. GS-9137 [Concomitant]
     Indication: HIV INFECTION
     Route: 048
     Dates: start: 20070313, end: 20100423
  3. TRUVADA [Concomitant]
     Indication: HIV INFECTION
     Dates: start: 20070313, end: 20100312
  4. TRUVADA [Concomitant]
     Dates: start: 20100316, end: 20100331
  5. TRUVADA [Concomitant]
     Dates: start: 20100331, end: 20100411
  6. LASIX [Concomitant]
     Indication: CARDIAC FAILURE CONGESTIVE
     Dates: start: 20100311
  7. TESTOSTERONE [Concomitant]
     Indication: HYPOGONADISM
     Dates: start: 20070410
  8. VITAMIN B-12 [Concomitant]
     Indication: VITAMIN B12 DEFICIENCY
     Dates: start: 20050101
  9. LEXAPRO [Concomitant]
     Indication: DEPRESSION
     Dates: start: 20060808
  10. AMITRIPTYLINE [Concomitant]
     Indication: DEPRESSION
     Dates: start: 20060808
  11. AVALIDE [Concomitant]
     Indication: DIABETES MELLITUS
     Dates: start: 20050621
  12. AVALIDE [Concomitant]
     Indication: HYPERTENSION

REACTIONS (16)
  - CARDIAC ARREST [None]
  - CONGESTIVE CARDIOMYOPATHY [None]
  - DEEP VEIN THROMBOSIS [None]
  - HEPATIC FAILURE [None]
  - HYPOPERFUSION [None]
  - INTRACARDIAC THROMBUS [None]
  - LACTIC ACIDOSIS [None]
  - NEUTROPENIA [None]
  - OESOPHAGITIS [None]
  - PNEUMONIA [None]
  - PULMONARY HYPERTENSION [None]
  - PULMONARY OEDEMA [None]
  - PYREXIA [None]
  - RENAL FAILURE [None]
  - RESPIRATORY FAILURE [None]
  - SEPTIC SHOCK [None]
